FAERS Safety Report 4407605-2 (Version None)
Quarter: 2004Q3

REPORT INFORMATION
  Report Type: 
  Country: None (occurrence: None)
  Receive Date: 20040721
  Receipt Date: 20040707
  Transmission Date: 20050211
  Serious: Yes (Hospitalization)
  Sender: FDA-Public Use
  Company Number: EWC040739847

PATIENT
  Age: 79 Year
  Sex: Male

DRUGS (6)
  1. GEMCITABINE HYDROCHLORIDE-IV (GEMCITABINE) [Suspect]
     Indication: MALIGNANT URINARY TRACT NEOPLASM
     Dosage: 2200 MG/1 DAY
     Dates: start: 20040626, end: 20040626
  2. NEXIUM [Concomitant]
  3. SORTIS (ATORVASTATIN CALCIUM) [Concomitant]
  4. VOLTAREN [Concomitant]
  5. ALDACTONE [Concomitant]
  6. FRAGMIN [Concomitant]

REACTIONS (12)
  - ANURIA [None]
  - BLOOD BILIRUBIN INCREASED [None]
  - DYSPNOEA [None]
  - FLUID RETENTION [None]
  - HAEMATOCRIT DECREASED [None]
  - HAEMODIALYSIS [None]
  - HAEMOGLOBIN DECREASED [None]
  - HYPOTENSION [None]
  - METABOLIC ACIDOSIS [None]
  - NEUTROPHIL COUNT INCREASED [None]
  - RENAL FAILURE ACUTE [None]
  - WHITE BLOOD CELL COUNT INCREASED [None]
